FAERS Safety Report 15325732 (Version 1)
Quarter: 2018Q3

REPORT INFORMATION
  Report Type: Spontaneous
  Country: US (occurrence: US)
  Receive Date: 20180828
  Receipt Date: 20180828
  Transmission Date: 20181010
  Serious: Yes (Hospitalization)
  Sender: FDA-Public Use
  Company Number: US-ELI_LILLY_AND_COMPANY-US201808009896

PATIENT
  Age: 75 Year
  Sex: Male

DRUGS (2)
  1. BASAGLAR [Suspect]
     Active Substance: INSULIN GLARGINE
     Dosage: UNK, UNKNOWN
     Route: 065
  2. BASAGLAR [Suspect]
     Active Substance: INSULIN GLARGINE
     Indication: DIABETES MELLITUS
     Dosage: UNK, UNKNOWN
     Route: 065
     Dates: start: 201804

REACTIONS (7)
  - Arterial occlusive disease [Recovered/Resolved]
  - Sleep disorder due to a general medical condition [Recovered/Resolved]
  - Sleep disorder [Recovered/Resolved]
  - Gait disturbance [Not Recovered/Not Resolved]
  - Arterial occlusive disease [Recovered/Resolved]
  - Post procedural haemorrhage [Recovered/Resolved]
  - Arthralgia [Not Recovered/Not Resolved]

NARRATIVE: CASE EVENT DATE: 2017
